FAERS Safety Report 17243039 (Version 2)
Quarter: 2020Q1

REPORT INFORMATION
  Report Type: Spontaneous
  Country: US (occurrence: US)
  Receive Date: 20200107
  Receipt Date: 20200218
  Transmission Date: 20200409
  Serious: No
  Sender: FDA-Public Use
  Company Number: US-CELGENEUS-USA-20191211046

PATIENT
  Age: 66 Year
  Sex: Female

DRUGS (5)
  1. KETOCONAZOLE. [Concomitant]
     Active Substance: KETOCONAZOLE
     Indication: PSORIASIS
     Route: 061
  2. DERMASMOOTHE SCALP [Concomitant]
     Indication: PSORIASIS
     Route: 061
  3. OTEZLA [Suspect]
     Active Substance: APREMILAST
     Indication: PRURITUS
     Dosage: 60 MILLIGRAM
     Route: 048
     Dates: start: 20190921
  4. CLOBETASOL [Concomitant]
     Active Substance: CLOBETASOL
     Indication: PSORIASIS
     Route: 061
     Dates: start: 2019, end: 2020
  5. OTEZLA [Suspect]
     Active Substance: APREMILAST
     Indication: PSORIASIS
     Dosage: 10MG/20MG/30MG
     Route: 048
     Dates: start: 2019

REACTIONS (2)
  - Psoriasis [Recovered/Resolved]
  - Pruritus [Recovered/Resolved]

NARRATIVE: CASE EVENT DATE: 20191230
